FAERS Safety Report 8345801-2 (Version None)
Quarter: 2012Q2

REPORT INFORMATION
  Report Type: 
  Country: None (occurrence: None)
  Receive Date: 20120509
  Receipt Date: 20120502
  Transmission Date: 20120825
  Serious: Yes (Hospitalization)
  Sender: FDA-Public Use
  Company Number: US-ALVOGEN-2012AL000035

PATIENT
  Sex: Female

DRUGS (3)
  1. ACITRETIN [Suspect]
     Indication: PSORIASIS
     Route: 048
  2. MACROBID [Suspect]
     Indication: URINARY TRACT INFECTION
  3. LIPITOR [Concomitant]
     Indication: PRODUCT USED FOR UNKNOWN INDICATION

REACTIONS (2)
  - BLOOD URIC ACID INCREASED [None]
  - PYREXIA [None]
